FAERS Safety Report 8064013-3 (Version None)
Quarter: 2012Q1

REPORT INFORMATION
  Report Type: 
  Country: None (occurrence: None)
  Receive Date: 20120123
  Receipt Date: 20120117
  Transmission Date: 20120608
  Serious: Yes (Hospitalization, Congenital Anomaly, Other)
  Sender: FDA-Public Use
  Company Number: US-PFIZER INC-2011105788

PATIENT
  Sex: Female
  Weight: 2.6 kg

DRUGS (2)
  1. ZOLOFT [Suspect]
     Dosage: UNK
     Route: 064
  2. EFFEXOR [Suspect]
     Indication: DEPRESSION
     Dosage: 150 MG, UNK
     Route: 064

REACTIONS (10)
  - FOETAL EXPOSURE DURING PREGNANCY [None]
  - VENTRICULAR SEPTAL DEFECT [None]
  - ATRIAL SEPTAL DEFECT [None]
  - JAUNDICE NEONATAL [None]
  - HAEMANGIOMA [None]
  - SUPRAVENTRICULAR EXTRASYSTOLES [None]
  - RIGHT VENTRICULAR HYPERTROPHY [None]
  - CARDIOMEGALY [None]
  - FAILURE TO THRIVE [None]
  - ATELECTASIS [None]
